FAERS Safety Report 5516340-9 (Version None)
Quarter: 2007Q4

REPORT INFORMATION
  Report Type: 
  Country: None (occurrence: None)
  Receive Date: 20071114
  Receipt Date: 20070131
  Transmission Date: 20080405
  Serious: No
  Sender: FDA-Public Use
  Company Number: A0637599A

PATIENT
  Age: 50 Year
  Sex: Male

DRUGS (7)
  1. COMMIT [Suspect]
     Dates: start: 20070129, end: 20070129
  2. CARISOPRODOL [Concomitant]
  3. UNSPECIFIED MEDICATION [Concomitant]
  4. LIPITOR [Concomitant]
  5. TRICOR [Concomitant]
  6. MELOXICAM [Concomitant]
  7. MULTI-VITAMIN [Concomitant]

REACTIONS (8)
  - ABNORMAL BEHAVIOUR [None]
  - CHEST PAIN [None]
  - DELUSION [None]
  - FEELING ABNORMAL [None]
  - HYPERSENSITIVITY [None]
  - INFLUENZA LIKE ILLNESS [None]
  - MALAISE [None]
  - MEMORY IMPAIRMENT [None]
